FAERS Safety Report 10579878 (Version 1)
Quarter: 2014Q4

REPORT INFORMATION
  Report Type: Spontaneous
  Country: US (occurrence: US)
  Receive Date: 20141112
  Receipt Date: 20141112
  Transmission Date: 20150529
  Serious: No
  Sender: FDA-Public Use
  Company Number: US-SHIRE-US201407498

PATIENT
  Age: 70 Year
  Sex: Female

DRUGS (2)
  1. PENTASA [Suspect]
     Active Substance: MESALAMINE
     Indication: CROHN^S DISEASE
     Dosage: 8 DF, 1X/DAY:QD
     Route: 048
     Dates: start: 201409, end: 20141014
  2. PENTASA [Suspect]
     Active Substance: MESALAMINE
     Dosage: 3-4 DF , 1X/DAY:QD
     Route: 048
     Dates: start: 20141014

REACTIONS (2)
  - Product use issue [Not Recovered/Not Resolved]
  - No adverse event [Not Recovered/Not Resolved]

NARRATIVE: CASE EVENT DATE: 201409
